FAERS Safety Report 7561717-3 (Version None)
Quarter: 2011Q2

REPORT INFORMATION
  Report Type: 
  Country: None (occurrence: None)
  Receive Date: 20110621
  Receipt Date: 20101119
  Transmission Date: 20111010
  Serious: No
  Sender: FDA-Public Use
  Company Number: US-ASTRAZENECA-2010SE55463

PATIENT
  Sex: Female
  Weight: 65.8 kg

DRUGS (2)
  1. RHINOCORT [Suspect]
     Indication: SINUSITIS
     Dosage: 2 SPR EACH NOSTRI QD
     Route: 045
     Dates: start: 20060101
  2. CLARITIN [Concomitant]

REACTIONS (4)
  - THROAT IRRITATION [None]
  - COUGH [None]
  - EPISTAXIS [None]
  - SINUSITIS [None]
